FAERS Safety Report 8491497-9 (Version None)
Quarter: 2012Q3

REPORT INFORMATION
  Report Type: 
  Country: None (occurrence: None)
  Receive Date: 20120706
  Receipt Date: 20120629
  Transmission Date: 20120928
  Serious: Yes (Other)
  Sender: FDA-Public Use
  Company Number: FR-ASTRAZENECA-2012SE44697

PATIENT

DRUGS (1)
  1. NAROPIN [Suspect]
     Indication: NERVE BLOCK

REACTIONS (1)
  - OVERDOSE [None]
